FAERS Safety Report 19721115 (Version 1)
Quarter: 2021Q3

REPORT INFORMATION
  Report Type: Report from Study
  Country: US (occurrence: US)
  Receive Date: 20210818
  Receipt Date: 20210818
  Transmission Date: 20211014
  Serious: Yes (Hospitalization, Other)
  Sender: FDA-Public Use
  Company Number: US-GILEAD-2021-0543687

PATIENT
  Sex: Male

DRUGS (1)
  1. IDELALISIB [Suspect]
     Active Substance: IDELALISIB
     Indication: CHRONIC LYMPHOCYTIC LEUKAEMIA
     Dosage: 100 MG, BID
     Route: 048
     Dates: start: 20210716

REACTIONS (5)
  - Product dose omission issue [Unknown]
  - Platelet count decreased [Unknown]
  - Haemoglobin decreased [Unknown]
  - Haematocrit decreased [Unknown]
  - Dyspnoea [Unknown]
